FAERS Safety Report 7487607-2 (Version None)
Quarter: 2011Q2

REPORT INFORMATION
  Report Type: 
  Country: None (occurrence: None)
  Receive Date: 20110511
  Receipt Date: 20110429
  Transmission Date: 20111010
  Serious: Yes (Hospitalization)
  Sender: FDA-Public Use
  Company Number: IDA-00539

PATIENT
  Age: 61 Year
  Sex: Male

DRUGS (6)
  1. FUROSEMIDE [Suspect]
     Indication: HEPATIC CIRRHOSIS
     Dosage: 80 MG DAILY
     Dates: start: 20051201, end: 20100122
  2. ALDACTONE [Suspect]
     Indication: HEPATIC CIRRHOSIS
     Dosage: 100 MG DAILY ORAL FORMULATION: TABLET
     Route: 048
     Dates: start: 20051201, end: 20100122
  3. OMEPRAZOLE [Concomitant]
  4. URBAL (SUCRALFATE) [Concomitant]
  5. NOROXIN [Concomitant]
  6. PROPRANOLOL HCL [Suspect]
     Indication: PROPHYLAXIS
     Dosage: 80 MG DAILY ORAL FORMULATION: TABLET
     Route: 048
     Dates: start: 20091101

REACTIONS (5)
  - BLOOD PRESSURE DECREASED [None]
  - HYPONATRAEMIA [None]
  - HEART RATE DECREASED [None]
  - HAEMOGLOBIN DECREASED [None]
  - RENAL FAILURE ACUTE [None]
